FAERS Safety Report 7674055-5 (Version None)
Quarter: 2011Q3

REPORT INFORMATION
  Report Type: 
  Country: None (occurrence: None)
  Receive Date: 20110810
  Receipt Date: 20110801
  Transmission Date: 20111222
  Serious: Yes (Hospitalization)
  Sender: FDA-Public Use
  Company Number: BR-US-EMD SERONO, INC.-7074587

PATIENT
  Sex: Male

DRUGS (2)
  1. MANTIDAN [Concomitant]
  2. REBIF [Suspect]
     Indication: RELAPSING-REMITTING MULTIPLE SCLEROSIS
     Route: 058
     Dates: start: 20080901

REACTIONS (2)
  - PILONIDAL CYST [None]
  - INCORRECT DOSE ADMINISTERED [None]
